FAERS Safety Report 16817634 (Version 1)
Quarter: 2019Q3

REPORT INFORMATION
  Report Type: Report from Study
  Country: US (occurrence: US)
  Receive Date: 20190917
  Receipt Date: 20190917
  Transmission Date: 20191005
  Serious: Yes (Hospitalization, Other)
  Sender: FDA-Public Use
  Company Number: US-GILEAD-2019-0428098

PATIENT
  Age: 55 Year
  Sex: Female

DRUGS (1)
  1. EMTRICITABINE/TENOFOVIR DISOPROXIL FUMARATE [Suspect]
     Active Substance: EMTRICITABINE\TENOFOVIR DISOPROXIL FUMARATE
     Indication: HIV INFECTION
     Dosage: 500 MG, QD
     Route: 048

REACTIONS (11)
  - Knee operation [Not Recovered/Not Resolved]
  - Wheelchair user [Not Recovered/Not Resolved]
  - Leg amputation [Not Recovered/Not Resolved]
  - Bone density decreased [Unknown]
  - Gait inability [Not Recovered/Not Resolved]
  - Nerve compression [Not Recovered/Not Resolved]
  - Pain [Recovered/Resolved]
  - Orthosis user [Recovered/Resolved]
  - Dysstasia [Recovered/Resolved]
  - Hip arthroplasty [Not Recovered/Not Resolved]
  - Peroneal nerve palsy [Recovered/Resolved]

NARRATIVE: CASE EVENT DATE: 2016
